FAERS Safety Report 18836127 (Version 1)
Quarter: 2021Q1

REPORT INFORMATION
  Report Type: Spontaneous
  Country: CN (occurrence: CN)
  Receive Date: 20210203
  Receipt Date: 20210203
  Transmission Date: 20210419
  Serious: Yes (Other)
  Sender: FDA-Public Use
  Company Number: CN-009507513-2101CHN013746

PATIENT
  Age: 52 Year
  Sex: Male

DRUGS (4)
  1. PACLITAXEL ALBUMIN [Concomitant]
     Active Substance: PACLITAXEL
     Indication: MALIGNANT MELANOMA
  2. KEYTRUDA [Suspect]
     Active Substance: PEMBROLIZUMAB
     Dosage: 200 MILLIGRAM IN THE THIRD CYCLE
     Route: 042
     Dates: start: 20201208, end: 20201208
  3. CISPLATIN. [Concomitant]
     Active Substance: CISPLATIN
     Indication: MALIGNANT MELANOMA
  4. KEYTRUDA [Suspect]
     Active Substance: PEMBROLIZUMAB
     Indication: MALIGNANT MELANOMA
     Dosage: UNK

REACTIONS (4)
  - Hypothyroidism [Recovering/Resolving]
  - Dizziness [Recovering/Resolving]
  - Syncope [Unknown]
  - Hypophysitis [Unknown]

NARRATIVE: CASE EVENT DATE: 20201208
